FAERS Safety Report 8268762-3 (Version None)
Quarter: 2012Q2

REPORT INFORMATION
  Report Type: 
  Country: None (occurrence: None)
  Receive Date: 20120409
  Receipt Date: 20120409
  Transmission Date: 20120825
  Serious: Yes (Other)
  Sender: FDA-Public Use
  Company Number: None

PATIENT
  Sex: Female

DRUGS (1)
  1. HUMIRA [Suspect]
     Indication: CROHN'S DISEASE
     Dosage: 40MG
     Route: 058
     Dates: start: 20110118, end: 20120404

REACTIONS (4)
  - MYALGIA [None]
  - FATIGUE [None]
  - RASH [None]
  - LUPUS-LIKE SYNDROME [None]
